FAERS Safety Report 7541584-4 (Version None)
Quarter: 2011Q2

REPORT INFORMATION
  Report Type: 
  Country: None (occurrence: None)
  Receive Date: 20110613
  Receipt Date: 20110608
  Transmission Date: 20111010
  Serious: No
  Sender: FDA-Public Use
  Company Number: US-PFIZER INC-2011123667

PATIENT
  Sex: Female
  Weight: 52.15 kg

DRUGS (1)
  1. CHANTIX [Suspect]
     Indication: SMOKING CESSATION THERAPY
     Dosage: 0.5 MG, UNK
     Route: 048
     Dates: start: 20110501, end: 20110606

REACTIONS (3)
  - CONSTIPATION [None]
  - INSOMNIA [None]
  - CRYING [None]
